FAERS Safety Report 4353092-2 (Version None)
Quarter: 2004Q2

REPORT INFORMATION
  Report Type: 
  Country: None (occurrence: None)
  Receive Date: 20040429
  Receipt Date: 20040416
  Transmission Date: 20050107
  Serious: Yes (Other)
  Sender: FDA-Public Use
  Company Number: 2004209846GB

PATIENT
  Sex: Female

DRUGS (1)
  1. XALATAN [Suspect]
     Dosage: UNK, BID, OPHTHALMIC
     Route: 047
     Dates: start: 20040201

REACTIONS (1)
  - CONJUNCTIVAL HAEMORRHAGE [None]
